FAERS Safety Report 4559537-7 (Version None)
Quarter: 2005Q1

REPORT INFORMATION
  Report Type: 
  Country: None (occurrence: None)
  Receive Date: 20050124
  Receipt Date: 20050110
  Transmission Date: 20050727
  Serious: Yes (Disabling)
  Sender: FDA-Public Use
  Company Number: US-GLAXOSMITHKLINE-B0364239A

PATIENT
  Age: 33 Year
  Sex: Male

DRUGS (8)
  1. LAMIVUDINE [Suspect]
     Indication: HIV INFECTION
     Route: 065
  2. INDINAVIR [Suspect]
     Indication: HIV INFECTION
     Route: 065
  3. STAVUDINE [Suspect]
     Indication: HIV INFECTION
     Route: 065
  4. RITONAVIR [Concomitant]
     Indication: HIV INFECTION
  5. SAQUINAVIR [Concomitant]
     Indication: HIV INFECTION
     Route: 065
  6. NEVIRAPINE [Concomitant]
     Indication: HIV INFECTION
  7. FOSCARNET [Concomitant]
  8. UNSPECIFIED DRUG [Concomitant]
     Route: 065

REACTIONS (9)
  - CEREBELLAR ATROPHY [None]
  - CEREBELLAR SYNDROME [None]
  - COORDINATION ABNORMAL [None]
  - DRUG TOXICITY [None]
  - DYSARTHRIA [None]
  - IMMUNE RECONSTITUTION SYNDROME [None]
  - INFECTION [None]
  - NYSTAGMUS [None]
  - PRIMARY CEREBELLAR DEGENERATION [None]
